FAERS Safety Report 20578948 (Version 1)
Quarter: 2022Q1

REPORT INFORMATION
  Report Type: Spontaneous
  Country: AU (occurrence: AU)
  Receive Date: 20220310
  Receipt Date: 20220310
  Transmission Date: 20220423
  Serious: Yes (Hospitalization, Other)
  Sender: FDA-Public Use
  Company Number: AU-NOVARTISPH-NVSC2022AU044380

PATIENT
  Sex: Male

DRUGS (12)
  1. CLOZAPINE [Suspect]
     Active Substance: CLOZAPINE
     Indication: Schizophrenia
     Dosage: 50 MG
     Route: 048
     Dates: start: 20060517
  2. CLOZAPINE [Suspect]
     Active Substance: CLOZAPINE
     Dosage: 475 MG, QD ((100MG MANE AND 375MG NOCTE))
     Route: 065
  3. CLOZAPINE [Suspect]
     Active Substance: CLOZAPINE
     Dosage: 100 MG, BID
     Route: 065
  4. CLOZAPINE [Suspect]
     Active Substance: CLOZAPINE
     Dosage: 350 MG
     Route: 065
     Dates: start: 20220201
  5. CLOZAPINE [Suspect]
     Active Substance: CLOZAPINE
     Dosage: 200 MG, QD
     Route: 065
  6. METFORMIN [Suspect]
     Active Substance: METFORMIN HYDROCHLORIDE
     Indication: Product used for unknown indication
     Dosage: 1000 MG, BID
     Route: 065
  7. PANTOPRAZOLE [Suspect]
     Active Substance: PANTOPRAZOLE
     Indication: Product used for unknown indication
     Dosage: 20 MG, QD
     Route: 065
  8. OLANZAPINE [Suspect]
     Active Substance: OLANZAPINE
     Indication: Product used for unknown indication
     Dosage: 5 MG, BID
     Route: 065
  9. ARIPIPRAZOLE [Suspect]
     Active Substance: ARIPIPRAZOLE
     Indication: Product used for unknown indication
     Dosage: 20 MG, QD
     Route: 065
  10. ASPIRIN [Suspect]
     Active Substance: ASPIRIN
     Indication: Product used for unknown indication
     Dosage: 100 MG, QD
     Route: 065
  11. ATORVASTATIN [Suspect]
     Active Substance: ATORVASTATIN
     Indication: Product used for unknown indication
     Dosage: 40 MG, QD
     Route: 065
  12. OXYBUTYNIN [Suspect]
     Active Substance: OXYBUTYNIN
     Indication: Product used for unknown indication
     Dosage: 5 MG, QD
     Route: 065

REACTIONS (4)
  - Schizophrenia [Unknown]
  - Herpes zoster [Recovering/Resolving]
  - Pneumonia [Recovering/Resolving]
  - Myocarditis [Unknown]
